FAERS Safety Report 15907899 (Version 1)
Quarter: 2019Q1

REPORT INFORMATION
  Report Type: Spontaneous
  Country: US (occurrence: US)
  Receive Date: 20190204
  Receipt Date: 20190204
  Transmission Date: 20190417
  Serious: No
  Sender: FDA-Public Use
  Company Number: US-CELGENEUS-USA-20190109260

PATIENT
  Age: 69 Year
  Sex: Female

DRUGS (1)
  1. REVLIMID [Suspect]
     Active Substance: LENALIDOMIDE
     Indication: PLASMA CELL MYELOMA
     Dosage: 25 MILLIGRAM
     Route: 048
     Dates: start: 20190124

REACTIONS (6)
  - Eye pruritus [Unknown]
  - Eyelid margin crusting [Unknown]
  - Nasopharyngitis [Unknown]
  - Lethargy [Unknown]
  - Peripheral swelling [Unknown]
  - Asthenopia [Unknown]

NARRATIVE: CASE EVENT DATE: 20190124
